FAERS Safety Report 24107655 (Version 1)
Quarter: 2024Q3

REPORT INFORMATION
  Report Type: Report from Study
  Country: US (occurrence: None)
  Receive Date: 20240718
  Receipt Date: 20240718
  Transmission Date: 20241017
  Serious: Yes (Other)
  Sender: ASTRAZENECA
  Company Number: 2020SF30737

PATIENT
  Sex: Female

DRUGS (1)
  1. BRILINTA [Suspect]
     Active Substance: TICAGRELOR
     Indication: Stent placement
     Route: 048
     Dates: start: 201911

REACTIONS (5)
  - Liver injury [Unknown]
  - Contusion [Unknown]
  - Memory impairment [Unknown]
  - Product use issue [Unknown]
  - Product dose omission issue [Unknown]
